FAERS Safety Report 25934104 (Version 2)
Quarter: 2025Q4

REPORT INFORMATION
  Report Type: Spontaneous
  Country: GB (occurrence: GB)
  Receive Date: 20251017
  Receipt Date: 20251118
  Transmission Date: 20260117
  Serious: Yes (Life-Threatening, Other)
  Sender: AUROBINDO
  Company Number: GB-MHRA-MED-202510052250047460-KBMGD

PATIENT
  Age: 42 Year
  Sex: Female
  Weight: 86 kg

DRUGS (10)
  1. TRANEXAMIC ACID [Suspect]
     Active Substance: TRANEXAMIC ACID
     Indication: Surgery
     Dosage: 1 GRAM
     Dates: start: 20250923, end: 20250923
  2. AMOXICILLIN\CLAVULANATE POTASSIUM [Suspect]
     Active Substance: AMOXICILLIN\CLAVULANATE POTASSIUM
     Indication: Surgery
     Dosage: 1.2 GRAM
     Dates: start: 20250923, end: 20250923
  3. ONDANSETRON [Suspect]
     Active Substance: ONDANSETRON
     Indication: Anaesthesia
     Dosage: 4 MILLIGRAM
     Dates: start: 20250923, end: 20250923
  4. REMIFENTANIL [Suspect]
     Active Substance: REMIFENTANIL
     Indication: Anaesthesia
     Dosage: UNK
     Route: 065
     Dates: start: 20250923, end: 20250923
  5. DEXAMETHASONE [Suspect]
     Active Substance: DEXAMETHASONE
     Indication: Anaesthesia
     Dosage: 6.6 MILLIGRAM
     Dates: start: 20250923, end: 20250923
  6. BETADINE [Suspect]
     Active Substance: POVIDONE-IODINE
     Indication: Adverse drug reaction
     Dosage: UNK
     Route: 065
     Dates: start: 20250923, end: 20250923
  7. BETADINE [Suspect]
     Active Substance: POVIDONE-IODINE
     Indication: Mastectomy
  8. BETADINE [Suspect]
     Active Substance: POVIDONE-IODINE
     Indication: Preoperative care
  9. BETADINE [Suspect]
     Active Substance: POVIDONE-IODINE
     Indication: Axillary lymphadenectomy
  10. PROPOFOL [Concomitant]
     Active Substance: PROPOFOL
     Indication: Anaesthesia
     Dosage: UNK
     Route: 065

REACTIONS (9)
  - Hypotension [Recovered/Resolved]
  - Generalised oedema [Recovered/Resolved]
  - Cardiac arrest [Recovered/Resolved]
  - Piloerection [Recovered/Resolved]
  - Sinus tachycardia [Recovered/Resolved]
  - Anaphylactic reaction [Unknown]
  - Pulseless electrical activity [Unknown]
  - PCO2 decreased [Unknown]
  - Pulse abnormal [Unknown]

NARRATIVE: CASE EVENT DATE: 20250923
